FAERS Safety Report 16862380 (Version 1)
Quarter: 2019Q3

REPORT INFORMATION
  Report Type: Spontaneous
  Country: GB (occurrence: GB)
  Receive Date: 20190927
  Receipt Date: 20190927
  Transmission Date: 20191005
  Serious: Yes (Other)
  Sender: FDA-Public Use
  Company Number: GB-BAUSCH-BL-2019-054575

PATIENT
  Sex: Female

DRUGS (3)
  1. VENLAFAXINE [Suspect]
     Active Substance: VENLAFAXINE HYDROCHLORIDE
     Indication: PRODUCT USED FOR UNKNOWN INDICATION
     Route: 065
  2. VENLAFAXINE [Suspect]
     Active Substance: VENLAFAXINE HYDROCHLORIDE
     Dosage: OVER THE PAST 3 MONTHS HER DOSE HAS BEEN REDUCED FROM 150 MG TO 75 MG
     Route: 065
  3. VENLAFAXINE [Suspect]
     Active Substance: VENLAFAXINE HYDROCHLORIDE
     Dosage: DOSE HAS BEEN REDUCED FROM 75 MG TO 37.5 MG
     Route: 065

REACTIONS (8)
  - Drug ineffective [Unknown]
  - Mood altered [Unknown]
  - Balance disorder [Unknown]
  - Adverse event [Unknown]
  - Nausea [Unknown]
  - Dizziness [Unknown]
  - Suicide attempt [Unknown]
  - Overdose [Unknown]
